FAERS Safety Report 25221108 (Version 1)
Quarter: 2025Q2

REPORT INFORMATION
  Report Type: Spontaneous
  Country: US (occurrence: None)
  Receive Date: 20250421
  Receipt Date: 20250421
  Transmission Date: 20250717
  Serious: Yes (unspecified)
  Sender: FDA-CTU
  Company Number: None

PATIENT
  Age: 46 Year
  Sex: Female

DRUGS (1)
  1. KESIMPTA [Suspect]
     Active Substance: OFATUMUMAB
     Indication: Multiple sclerosis
     Dosage: 20MG ONCE MONTHLY ?

REACTIONS (6)
  - Chest pain [None]
  - Dyspnoea [None]
  - Vomiting [None]
  - Nausea [None]
  - Headache [None]
  - Myalgia [None]
